FAERS Safety Report 16058557 (Version 1)
Quarter: 2019Q1

REPORT INFORMATION
  Report Type: Spontaneous
  Country: US (occurrence: US)
  Receive Date: 20190311
  Receipt Date: 20190311
  Transmission Date: 20190418
  Serious: Yes (Other)
  Sender: FDA-Public Use
  Company Number: US-JNJFOC-20190305908

PATIENT
  Sex: Male

DRUGS (1)
  1. STELARA [Suspect]
     Active Substance: USTEKINUMAB
     Indication: CROHN^S DISEASE
     Route: 058

REACTIONS (7)
  - Stress [Unknown]
  - Product label issue [Unknown]
  - Malaise [Unknown]
  - Diabetes mellitus [Unknown]
  - Renal disorder [Unknown]
  - Sleep apnoea syndrome [Unknown]
  - Product storage error [Unknown]

NARRATIVE: CASE EVENT DATE: 20190227
